FAERS Safety Report 19445017 (Version 1)
Quarter: 2021Q2

REPORT INFORMATION
  Report Type: Spontaneous
  Country: US (occurrence: US)
  Receive Date: 20210621
  Receipt Date: 20210621
  Transmission Date: 20210717
  Serious: No
  Sender: FDA-Public Use
  Company Number: US-TAKEDA-2021TUS038478

PATIENT
  Sex: Female
  Weight: 100 kg

DRUGS (1)
  1. DEXILANT [Suspect]
     Active Substance: DEXLANSOPRAZOLE
     Indication: GASTROOESOPHAGEAL REFLUX DISEASE
     Dosage: 60 MILLIGRAM, QD
     Route: 065
     Dates: end: 20210614

REACTIONS (4)
  - Incorrect product administration duration [Unknown]
  - No adverse event [Unknown]
  - Extra dose administered [Unknown]
  - Product dose omission issue [Unknown]
